FAERS Safety Report 18286140 (Version 2)
Quarter: 2020Q3

REPORT INFORMATION
  Report Type: Spontaneous
  Country: US (occurrence: US)
  Receive Date: 20200919
  Receipt Date: 20200921
  Transmission Date: 20201103
  Serious: Yes (Other)
  Sender: FDA-Public Use
  Company Number: US-TEVA-2020-US-1828448

PATIENT
  Sex: Male

DRUGS (2)
  1. PROAIR HFA [Suspect]
     Active Substance: ALBUTEROL SULFATE
     Route: 065
     Dates: start: 20200907
  2. PROAIR HFA [Suspect]
     Active Substance: ALBUTEROL SULFATE
     Indication: ASTHMA
     Route: 065
     Dates: start: 20200903

REACTIONS (11)
  - Tremor [Unknown]
  - Hypoxia [Unknown]
  - Feeling jittery [Unknown]
  - Rhinorrhoea [Unknown]
  - Heart rate increased [Unknown]
  - Drug ineffective [Unknown]
  - Feeling abnormal [Unknown]
  - Impaired work ability [Unknown]
  - Drug hypersensitivity [Unknown]
  - Cough [Unknown]
  - Dyspnoea [Unknown]

NARRATIVE: CASE EVENT DATE: 202009
